FAERS Safety Report 20570702 (Version 1)
Quarter: 2022Q1

REPORT INFORMATION
  Report Type: Spontaneous
  Country: US (occurrence: US)
  Receive Date: 20220309
  Receipt Date: 20220309
  Transmission Date: 20220423
  Serious: Yes (Other)
  Sender: FDA-Public Use
  Company Number: US-ABBVIE-22K-163-4303605-00

PATIENT
  Sex: Male

DRUGS (7)
  1. LUPRON [Suspect]
     Active Substance: LEUPROLIDE ACETATE
     Indication: Product used for unknown indication
     Route: 065
  2. ENZALUTAMIDE [Suspect]
     Active Substance: ENZALUTAMIDE
     Indication: Hormone therapy
     Route: 048
     Dates: start: 20200101
  3. ENZALUTAMIDE [Suspect]
     Active Substance: ENZALUTAMIDE
     Indication: Prostate cancer
     Dosage: 4 TABLETS OF 40 MILLIGRAM
     Route: 065
  4. METOPROLOL [Concomitant]
     Active Substance: METOPROLOL
     Indication: Product used for unknown indication
  5. METOPROLOL [Concomitant]
     Active Substance: METOPROLOL
     Dosage: DOSE INCREASED
     Dates: start: 2021
  6. LOSARTAN [Concomitant]
     Active Substance: LOSARTAN
     Indication: Product used for unknown indication
  7. LOSARTAN [Concomitant]
     Active Substance: LOSARTAN
     Dosage: DOSE INCREASED
     Dates: start: 2021

REACTIONS (15)
  - Weight increased [Recovering/Resolving]
  - Hypoaesthesia oral [Unknown]
  - Paraesthesia oral [Unknown]
  - Peripheral swelling [Unknown]
  - Back pain [Unknown]
  - Blood pressure increased [Unknown]
  - Product dispensing error [Unknown]
  - Myalgia [Unknown]
  - Arthralgia [Unknown]
  - Myalgia [Unknown]
  - Nocturia [Unknown]
  - Fatigue [Unknown]
  - Weight decreased [Unknown]
  - Muscle spasms [Unknown]
  - Hot flush [Unknown]

NARRATIVE: CASE EVENT DATE: 20200101
